FAERS Safety Report 15622418 (Version 3)
Quarter: 2018Q4

REPORT INFORMATION
  Report Type: Report from Study
  Country: US (occurrence: US)
  Receive Date: 20181115
  Receipt Date: 20181205
  Transmission Date: 20190205
  Serious: Yes (Other)
  Sender: FDA-Public Use
  Company Number: US-AMGEN-USASL2018160018

PATIENT
  Age: 70 Year
  Sex: Male
  Weight: 67.12 kg

DRUGS (2)
  1. REPATHA [Suspect]
     Active Substance: EVOLOCUMAB
     Indication: HYPERLIPIDAEMIA
  2. REPATHA [Suspect]
     Active Substance: EVOLOCUMAB
     Indication: HYPERCHOLESTEROLAEMIA
     Dosage: 140 MG, Q2WK
     Route: 058
     Dates: start: 20180829, end: 20181114

REACTIONS (5)
  - Injection site pain [Unknown]
  - Hypersensitivity [Recovered/Resolved]
  - Dry skin [Unknown]
  - Feeling abnormal [Unknown]
  - Injection site bruising [Unknown]

NARRATIVE: CASE EVENT DATE: 20181010
